APPROVED DRUG PRODUCT: PAROMOMYCIN SULFATE
Active Ingredient: PAROMOMYCIN SULFATE
Strength: EQ 250MG BASE
Dosage Form/Route: CAPSULE;ORAL
Application: A064171 | Product #001
Applicant: SUN PHARMACEUTICAL INDUSTRIES INC
Approved: Jun 30, 1997 | RLD: No | RS: No | Type: DISCN